FAERS Safety Report 7006732-3 (Version None)
Quarter: 2010Q3

REPORT INFORMATION
  Report Type: 
  Country: None (occurrence: None)
  Receive Date: 20100922
  Receipt Date: 20100914
  Transmission Date: 20110219
  Serious: Yes (Hospitalization)
  Sender: FDA-Public Use
  Company Number: DE-BIOGENIDEC-2010BI031772

PATIENT
  Sex: Male

DRUGS (2)
  1. AVONEX [Suspect]
     Indication: RELAPSING-REMITTING MULTIPLE SCLEROSIS
     Route: 030
     Dates: start: 20090630
  2. IBUPROFEN [Concomitant]
     Indication: INFLUENZA LIKE ILLNESS
     Route: 048

REACTIONS (1)
  - GALLBLADDER POLYP [None]
